FAERS Safety Report 22093552 (Version 1)
Quarter: 2023Q1

REPORT INFORMATION
  Report Type: Spontaneous
  Country: US (occurrence: None)
  Receive Date: 20230314
  Receipt Date: 20230314
  Transmission Date: 20230418
  Serious: Yes (Death, Other)
  Sender: FDA-Public Use
  Company Number: 2023A059883

PATIENT
  Age: 28602 Day
  Sex: Male

DRUGS (17)
  1. TEZSPIRE [Suspect]
     Active Substance: TEZEPELUMAB-EKKO
     Indication: Acute sinusitis
     Dosage: 210MG 1.91ML PFS
     Route: 058
  2. ALBUTEROL [Concomitant]
     Active Substance: ALBUTEROL
  3. ALBUTEROL [Concomitant]
     Active Substance: ALBUTEROL
     Dosage: 2^5MG/0
  4. VORICONAZOLE [Concomitant]
     Active Substance: VORICONAZOLE
  5. BACTRIM [Concomitant]
     Active Substance: SULFAMETHOXAZOLE\TRIMETHOPRIM
     Dosage: 400- 80MG
  6. AIRBORNE CHE [Concomitant]
  7. ALLEGRA ALLE [Concomitant]
     Dosage: 1.80MG
  8. AMLODIPINE [Concomitant]
     Active Substance: AMLODIPINE BESYLATE
  9. AZELASTINE [Concomitant]
     Active Substance: AZELASTINE
     Dosage: 137 MCG/S
  10. BENADRYL ALL [Concomitant]
     Dosage: 25 MG
  11. BREO ELLIPTA [Concomitant]
     Active Substance: FLUTICASONE FUROATE\VILANTEROL TRIFENATATE
     Dosage: 100-25MC
  12. CHLORTHALIDO [Concomitant]
     Dosage: 25MG
  13. TRAMADOL HCL [Concomitant]
     Active Substance: TRAMADOL HYDROCHLORIDE
  14. TYLENOL [Concomitant]
     Active Substance: ACETAMINOPHEN
     Dosage: 325MG
  15. VITAMIN B12 [Concomitant]
     Active Substance: CYANOCOBALAMIN
     Dosage: 100MCG
  16. VITAMIN D3 [Concomitant]
     Active Substance: CHOLECALCIFEROL
  17. WELLBUTRIN TB1 [Concomitant]
     Dosage: 200MG

REACTIONS (1)
  - Death [Fatal]

NARRATIVE: CASE EVENT DATE: 20230303
